FAERS Safety Report 8998217 (Version 10)
Quarter: 2018Q4

REPORT INFORMATION
  Report Type: Spontaneous
  Country: US (occurrence: US)
  Receive Date: 20130104
  Receipt Date: 20181228
  Transmission Date: 20190205
  Serious: No
  Sender: FDA-Public Use
  Company Number: US-VERTEX PHARMACEUTICALS INC.-2013-000045

PATIENT
  Age: 52 Year
  Sex: Female
  Weight: 56 kg

DRUGS (25)
  1. KALYDECO [Suspect]
     Active Substance: IVACAFTOR
     Dosage: 1 AM, 0.5 PM
     Route: 048
     Dates: start: 2013, end: 2013
  2. KALYDECO [Suspect]
     Active Substance: IVACAFTOR
     Dosage: UNK
     Route: 048
     Dates: start: 20131031
  3. PEPCID [Concomitant]
     Active Substance: FAMOTIDINE
  4. ADEKS [Concomitant]
  5. CLARITIN [Concomitant]
     Active Substance: LORATADINE
  6. KALYDECO [Suspect]
     Active Substance: IVACAFTOR
     Dosage: 1 DF AM, QD
     Route: 048
     Dates: start: 2013, end: 2013
  7. LEXAPRO [Concomitant]
     Active Substance: ESCITALOPRAM OXALATE
  8. PANCREAZE [Concomitant]
     Active Substance: PANCRELIPASE AMYLASE\PANCRELIPASE LIPASE\PANCRELIPASE PROTEASE
  9. AMBIEN [Concomitant]
     Active Substance: ZOLPIDEM TARTRATE
  10. MAXAIR [Concomitant]
     Active Substance: PIRBUTEROL ACETATE
  11. KALYDECO [Suspect]
     Active Substance: IVACAFTOR
     Indication: CYSTIC FIBROSIS
     Dosage: 150 MG, BID
     Route: 048
     Dates: start: 20120211
  12. KALYDECO [Suspect]
     Active Substance: IVACAFTOR
     Dosage: 150 MG, BID
     Route: 048
     Dates: start: 20121102, end: 20121220
  13. KALYDECO [Suspect]
     Active Substance: IVACAFTOR
     Dosage: 75 MG, SINGLE
     Route: 048
     Dates: start: 20141103, end: 20141103
  14. PREVACID [Concomitant]
     Active Substance: LANSOPRAZOLE
  15. LAMICTAL [Concomitant]
     Active Substance: LAMOTRIGINE
  16. NASONEX [Concomitant]
     Active Substance: MOMETASONE FUROATE
  17. AMITIZA [Concomitant]
     Active Substance: LUBIPROSTONE
     Indication: IRRITABLE BOWEL SYNDROME
  18. KALYDECO [Suspect]
     Active Substance: IVACAFTOR
     Dosage: 75 MG, BID
     Route: 048
     Dates: start: 20131109, end: 201405
  19. DEXILANT [Concomitant]
     Active Substance: DEXLANSOPRAZOLE
  20. ATIVAN [Concomitant]
     Active Substance: LORAZEPAM
  21. KLONOPIN [Concomitant]
     Active Substance: CLONAZEPAM
  22. KALYDECO [Suspect]
     Active Substance: IVACAFTOR
     Dosage: 150 MG, BID
     Route: 048
     Dates: start: 20121227, end: 20121231
  23. KALYDECO [Suspect]
     Active Substance: IVACAFTOR
     Dosage: 75 MG, BID
     Route: 048
     Dates: start: 2014, end: 2014
  24. ADVAIR HFA [Concomitant]
     Active Substance: FLUTICASONE PROPIONATE\SALMETEROL XINAFOATE
  25. ASACOL [Concomitant]
     Active Substance: MESALAMINE
     Indication: LARGE INTESTINAL ULCER

REACTIONS (4)
  - Urticaria [Unknown]
  - Infective pulmonary exacerbation of cystic fibrosis [Recovering/Resolving]
  - Herpes zoster [Unknown]
  - Rash [Recovered/Resolved]

NARRATIVE: CASE EVENT DATE: 20121219
